FAERS Safety Report 10977492 (Version 1)
Quarter: 2015Q2

REPORT INFORMATION
  Report Type: Spontaneous
  Country: US (occurrence: None)
  Receive Date: 20150401
  Receipt Date: 20150401
  Transmission Date: 20150821
  Serious: Yes (Disabling)
  Sender: FDA-Public Use
  Company Number: None

PATIENT
  Age: 31 Year
  Sex: Female
  Weight: 56.7 kg

DRUGS (6)
  1. MIRAPEX ER [Concomitant]
     Active Substance: PRAMIPEXOLE DIHYDROCHLORIDE
  2. LYRICA [Concomitant]
     Active Substance: PREGABALIN
  3. LOSETRIN [Concomitant]
  4. PRAMIPEXOLE [Suspect]
     Active Substance: PRAMIPEXOLE
     Indication: DYSTONIA
     Dosage: 1 TAB THREE TIMES DAILY
     Route: 048
     Dates: start: 20150324, end: 20150329
  5. PRAMIPEXOLE [Suspect]
     Active Substance: PRAMIPEXOLE
     Indication: PAIN
     Dosage: 1 TAB THREE TIMES DAILY
     Route: 048
     Dates: start: 20150324, end: 20150329
  6. BACLOFEN. [Concomitant]
     Active Substance: BACLOFEN

REACTIONS (10)
  - Dysgraphia [None]
  - Irritability [None]
  - Chest pain [None]
  - Insomnia [None]
  - Product substitution issue [None]
  - Decreased appetite [None]
  - Pain [None]
  - Mood swings [None]
  - Drug effect decreased [None]
  - Gait disturbance [None]

NARRATIVE: CASE EVENT DATE: 20150325
